FAERS Safety Report 7783888-6 (Version None)
Quarter: 2011Q3

REPORT INFORMATION
  Report Type: 
  Country: None (occurrence: None)
  Receive Date: 20110928
  Receipt Date: 20110922
  Transmission Date: 20111222
  Serious: Yes (Death, Life-Threatening)
  Sender: FDA-Public Use
  Company Number: US-GLAXOSMITHKLINE-A0946063A

PATIENT
  Age: 66 Year
  Sex: Female

DRUGS (5)
  1. HYCAMTIN [Suspect]
     Indication: BRONCHIAL CARCINOMA
     Dosage: 1MG PER DAY
     Route: 048
     Dates: start: 20110829
  2. OXYCODONE [Concomitant]
  3. DEXAMETHASONE [Concomitant]
  4. PEPCID [Concomitant]
  5. KEPPRA [Concomitant]

REACTIONS (1)
  - DEATH [None]
